FAERS Safety Report 20977754 (Version 1)
Quarter: 2022Q2

REPORT INFORMATION
  Report Type: Report from Study
  Country: CA (occurrence: CA)
  Receive Date: 20220618
  Receipt Date: 20220618
  Transmission Date: 20220720
  Serious: Yes (Death)
  Sender: FDA-Public Use
  Company Number: CA-ABBVIE-22K-028-4438470-00

PATIENT
  Age: 86 Year
  Sex: Male

DRUGS (16)
  1. GLECAPREVIR\PIBRENTASVIR [Suspect]
     Active Substance: GLECAPREVIR\PIBRENTASVIR
     Indication: Chronic hepatitis C
     Dosage: 100/40 MG
     Route: 048
     Dates: start: 20220406
  2. DAKLINZA [Concomitant]
     Active Substance: DACLATASVIR
     Indication: Product used for unknown indication
  3. EPCLUSA [Concomitant]
     Active Substance: SOFOSBUVIR\VELPATASVIR
     Indication: Product used for unknown indication
  4. SIMEPREVIR [Concomitant]
     Active Substance: SIMEPREVIR
     Indication: Product used for unknown indication
  5. HARVONI [Concomitant]
     Active Substance: LEDIPASVIR\SOFOSBUVIR
     Indication: Product used for unknown indication
  6. DASABUVIR\OMBITASVIR\PARITAPREVIR\RITONAVIR [Concomitant]
     Active Substance: DASABUVIR\OMBITASVIR\PARITAPREVIR\RITONAVIR
     Indication: Product used for unknown indication
  7. METHADONE [Concomitant]
     Active Substance: METHADONE HYDROCHLORIDE
     Indication: Product used for unknown indication
  8. OLYSIO [Concomitant]
     Active Substance: SIMEPREVIR
     Indication: Product used for unknown indication
  9. PEGINTERFERON ALFA-2A\RIBAVIRIN [Concomitant]
     Active Substance: PEGINTERFERON ALFA-2A\RIBAVIRIN
     Indication: Product used for unknown indication
  10. PEGETRON [Concomitant]
     Active Substance: PEGINTERFERON ALFA-2B\RIBAVIRIN
     Indication: Product used for unknown indication
  11. RIBAVIRIN [Concomitant]
     Active Substance: RIBAVIRIN
     Indication: Product used for unknown indication
  12. SOVALDI [Concomitant]
     Active Substance: SOFOSBUVIR
     Indication: Product used for unknown indication
  13. TECHNIVIE [Concomitant]
     Active Substance: OMBITASVIR HEMINONAHYDRATE\PARITAPREVIR DIHYDRATE\RITONAVIR
     Indication: Product used for unknown indication
  14. VICTRELIS [Concomitant]
     Active Substance: BOCEPREVIR
     Indication: Product used for unknown indication
  15. VOSEVI [Concomitant]
     Active Substance: SOFOSBUVIR\VELPATASVIR\VOXILAPREVIR
     Indication: Product used for unknown indication
  16. ZEPATIER [Concomitant]
     Active Substance: ELBASVIR\GRAZOPREVIR
     Indication: Product used for unknown indication

REACTIONS (1)
  - Death [Fatal]

NARRATIVE: CASE EVENT DATE: 20220606
